FAERS Safety Report 6815623-X (Version None)
Quarter: 2010Q3

REPORT INFORMATION
  Report Type: 
  Country: None (occurrence: None)
  Receive Date: 20100702
  Receipt Date: 20100629
  Transmission Date: 20110219
  Serious: Yes (Death, Hospitalization, Other)
  Sender: FDA-Public Use
  Company Number: IN-ELI_LILLY_AND_COMPANY-IN201006007794

PATIENT
  Age: 22 Year
  Sex: Male

DRUGS (1)
  1. XIGRIS [Suspect]
     Indication: SEPTIC SHOCK
     Dosage: UNK, UNKNOWN
     Dates: start: 20100629

REACTIONS (3)
  - MULTI-ORGAN FAILURE [None]
  - PUPILS UNEQUAL [None]
  - SEPTIC SHOCK [None]
